FAERS Safety Report 8969809 (Version 1)
Quarter: 2012Q4

REPORT INFORMATION
  Report Type: Report from Study
  Country: JP (occurrence: JP)
  Receive Date: 20121218
  Receipt Date: 20121218
  Transmission Date: 20130627
  Serious: Yes (Hospitalization)
  Sender: FDA-Public Use
  Company Number: JP-SANOFI-AVENTIS-2012SA090074

PATIENT
  Age: 66 Year
  Sex: Male
  Weight: 55.2 kg

DRUGS (17)
  1. LEFLUNOMIDE [Suspect]
     Indication: DRUG USE FOR UNKNOWN INDICATION
     Route: 065
     Dates: start: 20081013
  2. MONOCLONAL [Suspect]
     Indication: RHEUMATOID ARTHRITIS
     Route: 042
     Dates: start: 20090115
  3. PREDNISOLONE [Suspect]
     Indication: DRUG USE FOR UNKNOWN INDICATION
     Route: 065
     Dates: start: 20070810
  4. CELECOXIB [Suspect]
     Indication: DRUG USE FOR UNKNOWN INDICATION
     Route: 065
     Dates: start: 20100513, end: 20100518
  5. ALENDRONATE SODIUM [Suspect]
     Indication: DRUG USE FOR UNKNOWN INDICATION
     Route: 065
     Dates: start: 20090114
  6. FAMOTIDINE [Concomitant]
     Dates: start: 20050609
  7. REBAMIPIDE [Concomitant]
     Dates: start: 20050609
  8. KETOPROFEN [Concomitant]
     Dosage: adequate dose taken as needed
     Dates: start: 20040706
  9. DICLOFENAC SODIUM [Concomitant]
     Dosage: adequate dose taken as needed
     Dates: start: 20080613
  10. EPALRESTAT [Concomitant]
     Dates: start: 20070615
  11. ROSUVASTATIN CALCIUM [Concomitant]
     Dates: start: 20081013
  12. FLURBIPROFEN [Concomitant]
     Dosage: dose: as needed
     Dates: start: 20081203
  13. TERBINAFINE HYDROCHLORIDE [Concomitant]
     Dosage: dose: as needed
     Dates: start: 20100106
  14. NETICONAZOLE HYDROCHLORIDE [Concomitant]
     Dosage: as needed
     Dates: start: 20100106
  15. CILNIDIPINE [Concomitant]
     Dates: start: 20091127
  16. SALMETEROL XINAFOATE [Concomitant]
     Dates: start: 20091105
  17. SALMETEROL XINAFOATE [Concomitant]
     Dates: start: 20100401

REACTIONS (1)
  - Gastrointestinal haemorrhage [Recovered/Resolved]
